FAERS Safety Report 12983511 (Version 1)
Quarter: 2016Q4

REPORT INFORMATION
  Report Type: Spontaneous
  Country: US (occurrence: US)
  Receive Date: 20161128
  Receipt Date: 20161128
  Transmission Date: 20170207
  Serious: No
  Sender: FDA-Public Use
  Company Number: None

PATIENT
  Age: 32 Year

DRUGS (1)
  1. SEROQUEL [Suspect]
     Active Substance: QUETIAPINE FUMARATE
     Dosage: ?          QUANTITY:THING?.I N I. .\.;?

REACTIONS (2)
  - Weight increased [None]
  - Somnolence [None]

NARRATIVE: CASE EVENT DATE: 20100209
